FAERS Safety Report 8367145-5 (Version None)
Quarter: 2012Q2

REPORT INFORMATION
  Report Type: 
  Country: None (occurrence: None)
  Receive Date: 20120517
  Receipt Date: 20120510
  Transmission Date: 20120825
  Serious: No
  Sender: FDA-Public Use
  Company Number: US-ASTRAZENECA-2012SE30361

PATIENT
  Age: 17 Year
  Sex: Male

DRUGS (4)
  1. SEROQUEL [Suspect]
     Indication: AGITATION
     Route: 048
  2. STRATTERA [Concomitant]
  3. PROZAC [Concomitant]
  4. BENADRYL [Concomitant]

REACTIONS (2)
  - SEDATION [None]
  - OFF LABEL USE [None]
